FAERS Safety Report 22644847 (Version 1)
Quarter: 2023Q2

REPORT INFORMATION
  Report Type: Spontaneous
  Country: US (occurrence: US)
  Receive Date: 20230627
  Receipt Date: 20230627
  Transmission Date: 20230722
  Serious: No
  Sender: FDA-Public Use
  Company Number: US-009507513-2306USA006387

PATIENT
  Sex: Male

DRUGS (1)
  1. KEYTRUDA [Suspect]
     Active Substance: PEMBROLIZUMAB
     Indication: Colon cancer stage IV
     Dosage: 200 MILLIGRAM, EVERY 21 DAYS (Q3W)
     Route: 042

REACTIONS (4)
  - Rash [Unknown]
  - Arthralgia [Unknown]
  - Paraesthesia [Unknown]
  - Gait disturbance [Unknown]
